FAERS Safety Report 13628661 (Version 1)
Quarter: 2017Q2

REPORT INFORMATION
  Report Type: Spontaneous
  Country: US (occurrence: US)
  Receive Date: 20170607
  Receipt Date: 20170607
  Transmission Date: 20170830
  Serious: Yes (Other)
  Sender: FDA-Public Use
  Company Number: US-ASTELLAS-2017US021841

PATIENT
  Age: 58 Year
  Sex: Male

DRUGS (1)
  1. LEXISCAN [Suspect]
     Active Substance: REGADENOSON
     Indication: CARDIAC STRESS TEST
     Dosage: UNK, ONCE
     Route: 065

REACTIONS (4)
  - Hemiparesis [Unknown]
  - Photosensitivity reaction [Unknown]
  - Headache [Unknown]
  - Nausea [Unknown]
